FAERS Safety Report 7864489-8 (Version None)
Quarter: 2011Q4

REPORT INFORMATION
  Report Type: 
  Country: None (occurrence: None)
  Receive Date: 20111026
  Receipt Date: 20111021
  Transmission Date: 20120403
  Serious: Yes (Death, Hospitalization, Other)
  Sender: FDA-Public Use
  Company Number: 2011SP036303

PATIENT
  Age: 62 Year
  Sex: Male

DRUGS (5)
  1. FRAXIPARINE (NADROPARIN CALCIUM) [Suspect]
     Indication: PRODUCT USED FOR UNKNOWN INDICATION
  2. TEMODAL [Suspect]
     Indication: GLIOBLASTOMA MULTIFORME
     Dosage: 380 MG
     Dates: start: 20090902
  3. TEMODAL [Suspect]
     Indication: GLIOBLASTOMA MULTIFORME
     Dosage: 380 MG
     Dates: start: 20090805, end: 20090901
  4. TEMODAL [Suspect]
     Indication: GLIOBLASTOMA MULTIFORME
     Dosage: 380 MG
     Dates: start: 20090506, end: 20090601
  5. TEMODAL [Suspect]
     Indication: GLIOBLASTOMA MULTIFORME
     Dosage: 380 MG
     Dates: start: 20090603

REACTIONS (8)
  - PRODUCT USED FOR UNKNOWN INDICATION [None]
  - NEOPLASM PROGRESSION [None]
  - GLIOBLASTOMA MULTIFORME [None]
  - CEREBRAL THROMBOSIS [None]
  - OEDEMA PERIPHERAL [None]
  - THROMBOCYTOPENIA [None]
  - PULMONARY EMBOLISM [None]
  - PNEUMOCYSTIS JIROVECI INFECTION [None]
